FAERS Safety Report 25719463 (Version 4)
Quarter: 2025Q4

REPORT INFORMATION
  Report Type: Spontaneous
  Country: JP (occurrence: JP)
  Receive Date: 20250824
  Receipt Date: 20251010
  Transmission Date: 20260118
  Serious: Yes (Death, Hospitalization, Other)
  Sender: JOHNSON AND JOHNSON
  Company Number: JP-JNJFOC-20250601647

PATIENT
  Age: 72 Year
  Sex: Female

DRUGS (9)
  1. RYBREVANT [Suspect]
     Active Substance: AMIVANTAMAB-VMJW
     Indication: EGFR gene mutation
     Dosage: DOSE UNKNOWN?DAY1
     Route: 041
     Dates: start: 20250529, end: 20250529
  2. RYBREVANT [Suspect]
     Active Substance: AMIVANTAMAB-VMJW
     Dosage: DOSE UNKNOWN?DAY2
     Route: 041
     Dates: start: 20250530, end: 20250530
  3. RYBREVANT [Suspect]
     Active Substance: AMIVANTAMAB-VMJW
     Dosage: DOSE UNKNOWN, DAY8
     Route: 041
     Dates: start: 20250605, end: 20250605
  4. RYBREVANT [Suspect]
     Active Substance: AMIVANTAMAB-VMJW
     Dosage: DOSE UNKNOWN?DAY15
     Route: 041
     Dates: start: 20250612, end: 20250612
  5. RYBREVANT [Suspect]
     Active Substance: AMIVANTAMAB-VMJW
     Dosage: DOSE UNKNOWN?2CYCLE, DAY1
     Route: 041
     Dates: start: 20250619, end: 20250619
  6. CARBOPLATIN [Suspect]
     Active Substance: CARBOPLATIN
     Indication: EGFR gene mutation
     Dosage: DOSE UNKNOWN
     Route: 041
  7. CARBOPLATIN [Suspect]
     Active Substance: CARBOPLATIN
     Dosage: DOSE UNKNOWN
     Route: 041
     Dates: start: 20250529
  8. PEMETREXED [Suspect]
     Active Substance: PEMETREXED
     Indication: EGFR gene mutation
     Dosage: DOSE UNKNOWN
     Route: 041
  9. PEMETREXED [Suspect]
     Active Substance: PEMETREXED
     Dosage: DOSE UNKNOWN
     Route: 041
     Dates: start: 20250529

REACTIONS (9)
  - Hypoalbuminaemia [Fatal]
  - Pneumonia [Recovering/Resolving]
  - Myelosuppression [Unknown]
  - Ketoacidosis [Recovering/Resolving]
  - Pyrexia [Recovered/Resolved]
  - Oxygen saturation decreased [Recovered/Resolved]
  - Infusion related reaction [Recovered/Resolved]
  - Rash [Unknown]
  - Off label use [Unknown]

NARRATIVE: CASE EVENT DATE: 20250101
